FAERS Safety Report 10275793 (Version 1)
Quarter: 2014Q3

REPORT INFORMATION
  Report Type: Spontaneous
  Country: US (occurrence: None)
  Receive Date: 20140701
  Receipt Date: 20140701
  Transmission Date: 20150326
  Serious: Yes (Life-Threatening, Hospitalization)
  Sender: FDA-Public Use
  Company Number: None

PATIENT
  Age: 57 Year
  Sex: Male
  Weight: 93.3 kg

DRUGS (2)
  1. CEFTAROLINE 600MG FOREST PHARMACEUTICALS [Suspect]
     Active Substance: CEFTAROLINE
     Indication: CELLULITIS
     Route: 042
     Dates: start: 20140605, end: 20140625
  2. CEFTAROLINE 600MG FOREST PHARMACEUTICALS [Suspect]
     Active Substance: CEFTAROLINE
     Indication: OSTEOMYELITIS
     Route: 042
     Dates: start: 20140605, end: 20140625

REACTIONS (1)
  - Febrile neutropenia [None]

NARRATIVE: CASE EVENT DATE: 20140625
